FAERS Safety Report 9923496 (Version 1)
Quarter: 2014Q1

REPORT INFORMATION
  Report Type: Spontaneous
  Country: US (occurrence: US)
  Receive Date: 20140225
  Receipt Date: 20140225
  Transmission Date: 20141002
  Serious: No
  Sender: FDA-Public Use
  Company Number: US-AMGEN-USASP2013084219

PATIENT
  Age: 55 Year
  Sex: Female

DRUGS (3)
  1. ENBREL [Suspect]
     Indication: RHEUMATOID ARTHRITIS
     Dosage: 50 MG, QWK
     Route: 065
     Dates: start: 20130609, end: 20131103
  2. METHOTREXATE [Concomitant]
     Dosage: UNK
     Route: 065
     Dates: start: 201210, end: 201308
  3. ARAVA [Concomitant]
     Dosage: 20 MG, QD
     Dates: start: 201308

REACTIONS (1)
  - Arthralgia [Not Recovered/Not Resolved]
